FAERS Safety Report 23959217 (Version 1)
Quarter: 2024Q2

REPORT INFORMATION
  Report Type: Spontaneous
  Country: US (occurrence: US)
  Receive Date: 20240611
  Receipt Date: 20240611
  Transmission Date: 20240715
  Serious: Yes (Other)
  Sender: FDA-Public Use
  Company Number: US-PADAGIS-2024PAD00975

PATIENT

DRUGS (33)
  1. CLOBETASOL PROPIONATE [Suspect]
     Active Substance: CLOBETASOL PROPIONATE
     Indication: Chronic cutaneous lupus erythematosus
     Dosage: UNK
     Route: 065
  2. CLOBETASOL PROPIONATE [Suspect]
     Active Substance: CLOBETASOL PROPIONATE
     Indication: Raynaud^s phenomenon
  3. HYDROXYCHLOROQUINE [Suspect]
     Active Substance: HYDROXYCHLOROQUINE
     Indication: Chronic cutaneous lupus erythematosus
     Dosage: UNK
     Route: 065
  4. HYDROXYCHLOROQUINE [Suspect]
     Active Substance: HYDROXYCHLOROQUINE
     Indication: Raynaud^s phenomenon
  5. CHLOROQUINE [Suspect]
     Active Substance: CHLOROQUINE
     Indication: Chronic cutaneous lupus erythematosus
     Dosage: UNK
     Route: 065
  6. CHLOROQUINE [Suspect]
     Active Substance: CHLOROQUINE
     Indication: Raynaud^s phenomenon
  7. METHOTREXATE [Suspect]
     Active Substance: METHOTREXATE
     Indication: Chronic cutaneous lupus erythematosus
     Dosage: UNK
     Route: 065
  8. METHOTREXATE [Suspect]
     Active Substance: METHOTREXATE
     Indication: Raynaud^s phenomenon
  9. AZATHIOPRINE [Suspect]
     Active Substance: AZATHIOPRINE
     Indication: Chronic cutaneous lupus erythematosus
     Dosage: UNK
     Route: 065
  10. AZATHIOPRINE [Suspect]
     Active Substance: AZATHIOPRINE
     Indication: Raynaud^s phenomenon
  11. PENTOXIFYLLINE [Suspect]
     Active Substance: PENTOXIFYLLINE
     Indication: Chronic cutaneous lupus erythematosus
     Dosage: 800 MG, BID
     Route: 065
  12. PENTOXIFYLLINE [Suspect]
     Active Substance: PENTOXIFYLLINE
     Indication: Raynaud^s phenomenon
  13. ASPIRIN [Suspect]
     Active Substance: ASPIRIN
     Indication: Chronic cutaneous lupus erythematosus
     Dosage: 81 MG, QD
     Route: 065
  14. ASPIRIN [Suspect]
     Active Substance: ASPIRIN
     Indication: Raynaud^s phenomenon
  15. DOXAZOSIN [Suspect]
     Active Substance: DOXAZOSIN MESYLATE
     Indication: Chronic cutaneous lupus erythematosus
     Dosage: UNK
     Route: 065
  16. DOXAZOSIN [Suspect]
     Active Substance: DOXAZOSIN MESYLATE
     Indication: Raynaud^s phenomenon
  17. SILDENAFIL [Suspect]
     Active Substance: SILDENAFIL
     Indication: Chronic cutaneous lupus erythematosus
     Dosage: UNK
     Route: 065
  18. SILDENAFIL [Suspect]
     Active Substance: SILDENAFIL
     Indication: Raynaud^s phenomenon
  19. RUXOLITINIB [Suspect]
     Active Substance: RUXOLITINIB
     Indication: Chronic cutaneous lupus erythematosus
     Dosage: UNK
     Route: 061
  20. RUXOLITINIB [Suspect]
     Active Substance: RUXOLITINIB
     Indication: Raynaud^s phenomenon
  21. BELIMUMAB [Suspect]
     Active Substance: BELIMUMAB
     Indication: Chronic cutaneous lupus erythematosus
     Dosage: UNK
     Route: 065
  22. BELIMUMAB [Suspect]
     Active Substance: BELIMUMAB
     Indication: Raynaud^s phenomenon
  23. MYCOPHENOLATE MOFETIL [Suspect]
     Active Substance: MYCOPHENOLATE MOFETIL
     Indication: Chronic cutaneous lupus erythematosus
     Dosage: 1 G, BID
     Route: 065
  24. MYCOPHENOLATE MOFETIL [Suspect]
     Active Substance: MYCOPHENOLATE MOFETIL
     Indication: Raynaud^s phenomenon
  25. DAPSONE [Suspect]
     Active Substance: DAPSONE
     Indication: Chronic cutaneous lupus erythematosus
     Dosage: UNK
     Route: 065
  26. DAPSONE [Suspect]
     Active Substance: DAPSONE
     Indication: Raynaud^s phenomenon
  27. TOFACITINIB [Suspect]
     Active Substance: TOFACITINIB
     Indication: Chronic cutaneous lupus erythematosus
     Dosage: UNK
     Route: 065
  28. TOFACITINIB [Suspect]
     Active Substance: TOFACITINIB
     Indication: Raynaud^s phenomenon
  29. LENALIDOMIDE [Suspect]
     Active Substance: LENALIDOMIDE
     Indication: Chronic cutaneous lupus erythematosus
     Dosage: UNK
     Route: 065
  30. LENALIDOMIDE [Suspect]
     Active Substance: LENALIDOMIDE
     Indication: Raynaud^s phenomenon
  31. BOTULINUM TOXIN NOS [Suspect]
     Active Substance: BOTULINUM TOXIN NOS
     Indication: Chronic cutaneous lupus erythematosus
     Dosage: UNK (INJECTIONS TO THE HANDS)
     Route: 065
  32. BOTULINUM TOXIN NOS [Suspect]
     Active Substance: BOTULINUM TOXIN NOS
     Indication: Raynaud^s phenomenon
  33. RITUXIMAB [Concomitant]
     Active Substance: RITUXIMAB
     Indication: Autoimmune haemolytic anaemia
     Dosage: UNK
     Route: 065

REACTIONS (2)
  - Drug ineffective for unapproved indication [Unknown]
  - Drug intolerance [Unknown]
